FAERS Safety Report 5437172-6 (Version None)
Quarter: 2007Q3

REPORT INFORMATION
  Report Type: 
  Country: None (occurrence: None)
  Receive Date: 20070831
  Receipt Date: 20070709
  Transmission Date: 20080115
  Serious: Yes (Hospitalization)
  Sender: FDA-Public Use
  Company Number: US-PURDUE-USA_2007_0028512

PATIENT
  Age: 59 Year
  Sex: Male

DRUGS (4)
  1. OXYCONTIN [Suspect]
     Indication: PAIN
     Dosage: 3 TABLET, DAILY
     Dates: start: 20000101, end: 20020101
  2. PROZAC [Concomitant]
     Dosage: UNK, BID
  3. RANITIDINE [Concomitant]
     Dosage: UNK, TID
  4. BUSPIRONE [Concomitant]
     Dosage: UNK, TID

REACTIONS (2)
  - AMNESIA [None]
  - ROAD TRAFFIC ACCIDENT [None]
